FAERS Safety Report 7183802-0 (Version None)
Quarter: 2010Q4

REPORT INFORMATION
  Report Type: 
  Country: None (occurrence: None)
  Receive Date: 20101222
  Receipt Date: 20101216
  Transmission Date: 20110411
  Serious: Yes (Life-Threatening, Hospitalization)
  Sender: FDA-Public Use
  Company Number: FR-BAXTER-2010BH030364

PATIENT
  Age: 63 Year
  Sex: Female

DRUGS (18)
  1. GAMMAGARD LIQUID [Suspect]
     Indication: HUMORAL IMMUNE DEFECT
     Route: 042
     Dates: start: 20101026, end: 20101116
  2. ALPHA 1-ANTITRYPSIN (RECOMBINANT) [Concomitant]
  3. CEFTAZIDIME [Concomitant]
  4. EFFEXOR [Concomitant]
  5. VERAPAMIL [Concomitant]
  6. CALCIDOSE [Concomitant]
  7. COLECALCIFEROL [Concomitant]
  8. SINTROM [Concomitant]
  9. EUPANTOL [Concomitant]
  10. ATACAND [Concomitant]
  11. FORMOTEROL FUMARATE [Concomitant]
  12. TIOTROPIUM [Concomitant]
  13. MIFLASONE [Concomitant]
  14. TERBUTALINE SULFATE [Concomitant]
  15. IPRATROPIUM BROMIDE [Concomitant]
  16. OXYGEN [Concomitant]
  17. SPORANOX [Concomitant]
  18. CIPROFLOXACIN [Concomitant]

REACTIONS (2)
  - BRONCHOSPASM [None]
  - RESPIRATORY DISTRESS [None]
